FAERS Safety Report 4453650-0 (Version None)
Quarter: 2004Q3

REPORT INFORMATION
  Report Type: 
  Country: None (occurrence: None)
  Receive Date: 20040920
  Receipt Date: 20040913
  Transmission Date: 20050211
  Serious: Yes (Other)
  Sender: FDA-Public Use
  Company Number: US-ABBOTT-04P-163-0273032-00

PATIENT
  Sex: Female

DRUGS (9)
  1. SYNTHROID [Suspect]
     Indication: HYPOTHYROIDISM
     Route: 048
     Dates: start: 20000101, end: 20040801
  2. SYNTHROID [Suspect]
     Route: 048
     Dates: start: 20040801, end: 20040907
  3. SYNTHROID [Suspect]
     Route: 048
     Dates: start: 20040907
  4. SYNTHROID [Suspect]
     Route: 048
     Dates: start: 19840101, end: 20000101
  5. LANSOPRAZOLE [Concomitant]
     Indication: DRUG USE FOR UNKNOWN INDICATION
  6. AMLODIPINE BESYLATE [Concomitant]
     Indication: DRUG USE FOR UNKNOWN INDICATION
  7. DYAZIDE [Concomitant]
     Indication: DRUG USE FOR UNKNOWN INDICATION
  8. CLORAZEPATE DIPOTASSIUM [Concomitant]
     Indication: DRUG USE FOR UNKNOWN INDICATION
     Dates: end: 20040601
  9. VENLAFAXINE HCL [Concomitant]
     Indication: DRUG USE FOR UNKNOWN INDICATION
     Dates: end: 20040601

REACTIONS (8)
  - ELECTROCARDIOGRAM ABNORMAL [None]
  - JOINT LOCK [None]
  - JOINT SPRAIN [None]
  - MUSCLE DISORDER [None]
  - MUSCULAR WEAKNESS [None]
  - NEUROPATHY [None]
  - OVERDOSE [None]
  - ROTATOR CUFF SYNDROME [None]
